FAERS Safety Report 7152818-2 (Version None)
Quarter: 2010Q4

REPORT INFORMATION
  Report Type: 
  Country: None (occurrence: None)
  Receive Date: 20101130
  Receipt Date: 20101116
  Transmission Date: 20110411
  Serious: Yes (Hospitalization)
  Sender: FDA-Public Use
  Company Number: 021414

PATIENT
  Sex: Male
  Weight: 13.4 kg

DRUGS (6)
  1. LEVETIRACETAM [Suspect]
     Indication: PARTIAL SEIZURES
     Dosage: (300 MG ORAL) ; (600 MG ORAL) ; (900 MG ORAL) ; (780 MG ORAL)
     Route: 048
     Dates: start: 20100706, end: 20100721
  2. LEVETIRACETAM [Suspect]
     Indication: PARTIAL SEIZURES
     Dosage: (300 MG ORAL) ; (600 MG ORAL) ; (900 MG ORAL) ; (780 MG ORAL)
     Route: 048
     Dates: start: 20100721, end: 20100803
  3. LEVETIRACETAM [Suspect]
     Indication: PARTIAL SEIZURES
     Dosage: (300 MG ORAL) ; (600 MG ORAL) ; (900 MG ORAL) ; (780 MG ORAL)
     Route: 048
     Dates: start: 20100803, end: 20101013
  4. LEVETIRACETAM [Suspect]
     Indication: PARTIAL SEIZURES
     Dosage: (300 MG ORAL) ; (600 MG ORAL) ; (900 MG ORAL) ; (780 MG ORAL)
     Route: 048
     Dates: start: 20101013
  5. SULTIAME [Concomitant]
  6. PHENYTOIN [Concomitant]

REACTIONS (7)
  - ACETONAEMIC VOMITING [None]
  - CONVULSION [None]
  - FATIGUE [None]
  - NAUSEA [None]
  - STRESS [None]
  - VARICELLA [None]
  - WHITE BLOOD CELL COUNT INCREASED [None]
